FAERS Safety Report 7271892-6 (Version None)
Quarter: 2011Q1

REPORT INFORMATION
  Report Type: 
  Country: None (occurrence: None)
  Receive Date: 20110127
  Receipt Date: 20110117
  Transmission Date: 20110831
  Serious: Yes (Hospitalization)
  Sender: FDA-Public Use
  Company Number: 025652

PATIENT
  Sex: Female
  Weight: 78 kg

DRUGS (2)
  1. CIMZIA [Suspect]
     Indication: RHEUMATOID ARTHRITIS
     Dosage: (200 MG 1X/2 WEEKS, CDP870-050 SUBCUTANEOUS), (400 MG 1X/2 WEEKS, CDP870-051 SUBCUTANEOUS)
     Route: 058
     Dates: start: 20060620, end: 20101220
  2. CIMZIA [Suspect]
     Indication: RHEUMATOID ARTHRITIS
     Dosage: (200 MG 1X/2 WEEKS, CDP870-050 SUBCUTANEOUS), (400 MG 1X/2 WEEKS, CDP870-051 SUBCUTANEOUS)
     Route: 058
     Dates: start: 20060104, end: 20060620

REACTIONS (5)
  - CONDITION AGGRAVATED [None]
  - BRONCHOPNEUMONIA [None]
  - FOOT DEFORMITY [None]
  - ENDOMETRIAL HYPERPLASIA [None]
  - ABSCESS JAW [None]
